FAERS Safety Report 9734393 (Version 1)
Quarter: 2013Q4

REPORT INFORMATION
  Report Type: Report from Study
  Country: CA (occurrence: CA)
  Receive Date: 20131206
  Receipt Date: 20131206
  Transmission Date: 20140711
  Serious: Yes (Other)
  Sender: FDA-Public Use
  Company Number: CA-ROCHE-1309415

PATIENT
  Age: 68 Year
  Sex: Male
  Weight: 80.36 kg

DRUGS (12)
  1. CLONAZEPAM [Suspect]
     Indication: PRODUCT USED FOR UNKNOWN INDICATION
     Route: 065
  2. CLONAZEPAM [Suspect]
     Route: 065
  3. CLONAZEPAM [Suspect]
     Route: 065
  4. CELEXA (CANADA) [Suspect]
     Indication: PRODUCT USED FOR UNKNOWN INDICATION
     Route: 065
  5. LORAZEPAM [Suspect]
     Indication: PRODUCT USED FOR UNKNOWN INDICATION
     Route: 048
  6. LUPRON DEPOT [Suspect]
     Indication: PRODUCT USED FOR UNKNOWN INDICATION
     Route: 065
  7. ZOPICLONE [Suspect]
     Indication: PRODUCT USED FOR UNKNOWN INDICATION
     Route: 065
  8. ZOPICLONE [Suspect]
     Route: 065
  9. ZOPICLONE [Suspect]
     Route: 065
  10. ZOPICLONE [Suspect]
     Route: 065
  11. CITALOPRAM [Suspect]
     Indication: PRODUCT USED FOR UNKNOWN INDICATION
     Route: 065
  12. CITALOPRAM [Suspect]
     Route: 048

REACTIONS (21)
  - Arthralgia [Unknown]
  - Fatigue [Unknown]
  - Gait disturbance [Unknown]
  - Increased appetite [Unknown]
  - Insomnia [Unknown]
  - Memory impairment [Unknown]
  - Metastases to bone [Unknown]
  - Metastases to lung [Unknown]
  - Neoplasm skin [Unknown]
  - Pain in extremity [Unknown]
  - Prostate cancer metastatic [Unknown]
  - Prostatic specific antigen increased [Unknown]
  - Sciatica [Unknown]
  - Somnolence [Unknown]
  - Weight increased [Unknown]
  - Wrong drug administered [Unknown]
  - Intentional drug misuse [Unknown]
  - Off label use [Unknown]
  - Fall [Unknown]
  - Accident [Unknown]
  - Road traffic accident [Unknown]
